FAERS Safety Report 23600904 (Version 13)
Quarter: 2025Q2

REPORT INFORMATION
  Report Type: Report from Study
  Country: US (occurrence: US)
  Receive Date: 20240306
  Receipt Date: 20250527
  Transmission Date: 20250717
  Serious: Yes (Other)
  Sender: TAKEDA
  Company Number: US-TAKEDA-2021TUS036855

PATIENT
  Age: 60 Year
  Sex: Female
  Weight: 83 kg

DRUGS (44)
  1. HUMAN IMMUNOGLOBULIN G [Suspect]
     Active Substance: HUMAN IMMUNOGLOBULIN G
     Indication: Immunodeficiency
     Dosage: 40 GRAM, Q4WEEKS
     Dates: start: 20190927
  2. HUMAN IMMUNOGLOBULIN G [Suspect]
     Active Substance: HUMAN IMMUNOGLOBULIN G
     Indication: Asthma
  3. PREDNISONE [Suspect]
     Active Substance: PREDNISONE
     Indication: Product used for unknown indication
  4. SYMBICORT [Suspect]
     Active Substance: BUDESONIDE\FORMOTEROL FUMARATE DIHYDRATE
     Indication: Product used for unknown indication
     Dosage: UNK UNK, QD
  5. CEFDINIR [Suspect]
     Active Substance: CEFDINIR
     Indication: Product used for unknown indication
  6. DOXYCYCLINE [Suspect]
     Active Substance: DOXYCYCLINE
     Indication: Sinusitis
  7. ACETAMINOPHEN [Concomitant]
     Active Substance: ACETAMINOPHEN
  8. EPINEPHRINE [Concomitant]
     Active Substance: EPINEPHRINE
  9. FLUTICASONE PROPIONATE [Concomitant]
     Active Substance: FLUTICASONE PROPIONATE
  10. NYSTATIN [Concomitant]
     Active Substance: NYSTATIN
  11. DUPIXENT [Concomitant]
     Active Substance: DUPILUMAB
  12. SINGULAIR [Concomitant]
     Active Substance: MONTELUKAST SODIUM
  13. SODIUM CHLORIDE [Concomitant]
     Active Substance: SODIUM CHLORIDE
  14. SYNTHROID [Concomitant]
     Active Substance: LEVOTHYROXINE SODIUM
  15. ALBUTEROL SULFATE [Concomitant]
     Active Substance: ALBUTEROL SULFATE
  16. Goody^s extra strength [Concomitant]
  17. PROTONIX [Concomitant]
     Active Substance: PANTOPRAZOLE SODIUM
  18. BREZTRI [Concomitant]
     Active Substance: BUDESONIDE\FORMOTEROL\GLYCOPYRROLATE
  19. LEVSIN [Concomitant]
     Active Substance: HYOSCYAMINE SULFATE
  20. ROPINIROLE HYDROCHLORIDE [Concomitant]
     Active Substance: ROPINIROLE HYDROCHLORIDE
  21. ASTEPRO [Concomitant]
     Active Substance: AZELASTINE HYDROCHLORIDE
  22. LIDOCAINE [Concomitant]
     Active Substance: LIDOCAINE
  23. BUDESONIDE [Concomitant]
     Active Substance: BUDESONIDE
  24. PREVACID [Concomitant]
     Active Substance: LANSOPRAZOLE
  25. DIPHENHYDRAMINE HYDROCHLORIDE [Concomitant]
     Active Substance: DIPHENHYDRAMINE HYDROCHLORIDE
  26. VITAMIN D3 [Concomitant]
     Active Substance: CHOLECALCIFEROL
  27. MELOXICAM [Concomitant]
     Active Substance: MELOXICAM
  28. ASPIRIN [Concomitant]
     Active Substance: ASPIRIN
  29. NITROGLYCERIN [Concomitant]
     Active Substance: NITROGLYCERIN
  30. ROSUVASTATIN CALCIUM [Concomitant]
     Active Substance: ROSUVASTATIN CALCIUM
  31. AZITHROMYCIN [Concomitant]
     Active Substance: AZITHROMYCIN
  32. MUCINEX [Concomitant]
     Active Substance: GUAIFENESIN
  33. VALSARTAN [Concomitant]
     Active Substance: VALSARTAN
  34. DIPHENHYDRAMINE [Concomitant]
     Active Substance: DIPHENHYDRAMINE
  35. NASONEX [Concomitant]
     Active Substance: MOMETASONE FUROATE
  36. VENTOLIN [Concomitant]
     Active Substance: ALBUTEROL SULFATE
  37. PANTOPRAZOLE SODIUM [Concomitant]
     Active Substance: PANTOPRAZOLE SODIUM
  38. MYLANTA MAXIMUM STRENGTH [Concomitant]
     Active Substance: ALUMINUM HYDROXIDE\DIMETHICONE\MAGNESIUM HYDROXIDE
  39. CIMETIDINE [Concomitant]
     Active Substance: CIMETIDINE
  40. SODIUM CHLORIDE [Concomitant]
     Active Substance: SODIUM CHLORIDE
  41. SODIUM CHLORIDE [Concomitant]
     Active Substance: SODIUM CHLORIDE
  42. GENTAMICIN SULFATE [Concomitant]
     Active Substance: GENTAMICIN SULFATE
  43. ACTEMRA [Concomitant]
     Active Substance: TOCILIZUMAB
  44. MOUNJARO [Concomitant]
     Active Substance: TIRZEPATIDE

REACTIONS (45)
  - Pseudomonas infection [Unknown]
  - Corynebacterium infection [Unknown]
  - Polymyalgia rheumatica [Unknown]
  - Steroid diabetes [Unknown]
  - Bronchitis [Unknown]
  - COVID-19 [Unknown]
  - Respiratory tract infection [Recovering/Resolving]
  - Animal bite [Unknown]
  - Gastroenteritis viral [Recovered/Resolved]
  - Dyspnoea exertional [Unknown]
  - Pain in jaw [Unknown]
  - Gastrooesophageal reflux disease [Unknown]
  - Post procedural complication [Unknown]
  - Sinus pain [Recovered/Resolved]
  - Staphylococcal infection [Unknown]
  - Drug eruption [Unknown]
  - Productive cough [Unknown]
  - Infection [Unknown]
  - Product availability issue [Unknown]
  - Product use in unapproved indication [Unknown]
  - Peripheral swelling [Recovered/Resolved]
  - Giant cell arteritis [Unknown]
  - Antibody test abnormal [Unknown]
  - Postoperative wound infection [Unknown]
  - Ocular hyperaemia [Unknown]
  - Eye irritation [Unknown]
  - Oropharyngeal discomfort [Unknown]
  - Sinusitis bacterial [Unknown]
  - Glycosylated haemoglobin increased [Unknown]
  - Hepatic enzyme increased [Unknown]
  - Oral candidiasis [Recovered/Resolved]
  - Sinusitis [Recovering/Resolving]
  - Wheezing [Unknown]
  - Blood pressure increased [Unknown]
  - Cough [Unknown]
  - Influenza like illness [Unknown]
  - Dyspnoea [Unknown]
  - Chest discomfort [Unknown]
  - Arthralgia [Unknown]
  - Infusion site pain [Unknown]
  - Pyrexia [Unknown]
  - Urticaria [Unknown]
  - Nausea [Unknown]
  - Headache [Unknown]
  - Fatigue [Unknown]

NARRATIVE: CASE EVENT DATE: 20190927
